FAERS Safety Report 13460886 (Version 1)
Quarter: 2017Q2

REPORT INFORMATION
  Report Type: Report from Study
  Country: US (occurrence: US)
  Receive Date: 20170420
  Receipt Date: 20170420
  Transmission Date: 20170830
  Serious: Yes (Other)
  Sender: FDA-Public Use
  Company Number: US-ROCHE-1920004

PATIENT

DRUGS (1)
  1. BEVACIZUMAB [Suspect]
     Active Substance: BEVACIZUMAB
     Indication: MALIGNANT GLIOMA
     Dosage: DAYS 1 AND 15 OF EACH 28 DAY CYCLE
     Route: 042

REACTIONS (11)
  - Fatigue [Unknown]
  - Central nervous system necrosis [Unknown]
  - Hyponatraemia [Unknown]
  - Muscular weakness [Unknown]
  - Skin infection [Unknown]
  - Infection [Unknown]
  - Hypertension [Unknown]
  - Lymphopenia [Unknown]
  - Meningitis [Unknown]
  - Leukopenia [Unknown]
  - Neutropenia [Unknown]
